FAERS Safety Report 7641544-9 (Version None)
Quarter: 2011Q3

REPORT INFORMATION
  Report Type: 
  Country: None (occurrence: None)
  Receive Date: 20110728
  Receipt Date: 20110715
  Transmission Date: 20111222
  Serious: Yes (Other)
  Sender: FDA-Public Use
  Company Number: DE-JNJFOC-20110710274

PATIENT
  Sex: Female

DRUGS (1)
  1. TAPENTADOL [Suspect]
     Indication: PRODUCT USED FOR UNKNOWN INDICATION
     Dosage: 2 PER DAY
     Route: 048
     Dates: start: 20101125, end: 20110725

REACTIONS (5)
  - RENAL FAILURE [None]
  - RHABDOMYOLYSIS [None]
  - ANAEMIA [None]
  - RESTLESSNESS [None]
  - SOMNOLENCE [None]
